FAERS Safety Report 10842281 (Version 1)
Quarter: 2015Q1

REPORT INFORMATION
  Report Type: Spontaneous
  Country: US (occurrence: US)
  Receive Date: 20150220
  Receipt Date: 20150220
  Transmission Date: 20150721
  Serious: No
  Sender: FDA-Public Use
  Company Number: US-PFIZER INC-2015055216

PATIENT
  Sex: Female

DRUGS (4)
  1. VICODIN ES [Concomitant]
     Active Substance: ACETAMINOPHEN\HYDROCODONE BITARTRATE
     Dosage: UNK
  2. SOMA [Concomitant]
     Active Substance: CARISOPRODOL
  3. XANAX [Suspect]
     Active Substance: ALPRAZOLAM
  4. LYRICA [Suspect]
     Active Substance: PREGABALIN
     Indication: GENERALISED ANXIETY DISORDER
     Dosage: UNK

REACTIONS (3)
  - Product use issue [Unknown]
  - Glossodynia [Not Recovered/Not Resolved]
  - Nail growth abnormal [Not Recovered/Not Resolved]
